FAERS Safety Report 15277216 (Version 1)
Quarter: 2018Q3

REPORT INFORMATION
  Report Type: Spontaneous
  Country: FR (occurrence: FR)
  Receive Date: 20180814
  Receipt Date: 20180814
  Transmission Date: 20181010
  Serious: Yes (Other)
  Sender: FDA-Public Use
  Company Number: FR-ALLERGAN-1839707US

PATIENT
  Age: 66 Year
  Sex: Female

DRUGS (2)
  1. RISEDRONATE SODIUM ? BP [Suspect]
     Active Substance: RISEDRONATE SODIUM
     Indication: PRODUCT USED FOR UNKNOWN INDICATION
     Dosage: 35 MG, UNK
     Route: 065
     Dates: start: 2012, end: 2014
  2. RISEDRONATE SODIUM ? BP [Suspect]
     Active Substance: RISEDRONATE SODIUM
     Dosage: 75 MG, UNK
     Route: 065
     Dates: start: 2014, end: 2014

REACTIONS (2)
  - Spinal fracture [Unknown]
  - Food intolerance [Recovering/Resolving]

NARRATIVE: CASE EVENT DATE: 201605
